FAERS Safety Report 10744803 (Version 1)
Quarter: 2015Q1

REPORT INFORMATION
  Report Type: Spontaneous
  Country: US (occurrence: None)
  Receive Date: 20150126
  Receipt Date: 20150126
  Transmission Date: 20150721
  Serious: No
  Sender: FDA-Public Use
  Company Number: None

PATIENT
  Age: 57 Year
  Sex: Female

DRUGS (1)
  1. LATANOPROST. [Suspect]
     Active Substance: LATANOPROST
     Indication: OCULAR DISCOMFORT
     Dosage: 1 DROP EACH EYE NIGHTS, AT BEDTIME, INTO THE EYE
     Dates: start: 20121209, end: 20150122

REACTIONS (6)
  - Bursitis [None]
  - Alopecia [None]
  - Nightmare [None]
  - Intervertebral disc protrusion [None]
  - Myalgia [None]
  - Nausea [None]

NARRATIVE: CASE EVENT DATE: 20150123
